FAERS Safety Report 25180449 (Version 1)
Quarter: 2025Q2

REPORT INFORMATION
  Report Type: Spontaneous
  Country: US (occurrence: US)
  Receive Date: 20250409
  Receipt Date: 20250409
  Transmission Date: 20250717
  Serious: Yes (Hospitalization, Other)
  Sender: SANDOZ
  Company Number: US-SANDOZ-SDZ2025US020817

PATIENT
  Sex: Female

DRUGS (8)
  1. AZITHROMYCIN [Suspect]
     Active Substance: AZITHROMYCIN
     Indication: Mycobacterium avium complex infection
     Route: 065
     Dates: start: 202503
  2. AMIKACIN [Suspect]
     Active Substance: AMIKACIN
     Indication: Mycobacterium avium complex infection
     Route: 065
     Dates: start: 20250228
  3. AUGMENTIN [Suspect]
     Active Substance: AMOXICILLIN\CLAVULANATE POTASSIUM
     Indication: Mycobacterium avium complex infection
     Route: 065
     Dates: start: 202501
  4. ETHAMBUTOL [Suspect]
     Active Substance: ETHAMBUTOL HYDROCHLORIDE
     Indication: Mycobacterium avium complex infection
     Route: 065
     Dates: start: 202503
  5. LINEZOLID [Suspect]
     Active Substance: LINEZOLID
     Indication: Mycobacterium avium complex infection
     Route: 065
     Dates: start: 202502
  6. RIFAMPIN [Suspect]
     Active Substance: RIFAMPIN
     Indication: Mycobacterium avium complex infection
     Route: 065
     Dates: start: 202503
  7. TRIKAFTA [Suspect]
     Active Substance: ELEXACAFTOR\IVACAFTOR\TEZACAFTOR
     Indication: Partial seizures
     Route: 065
     Dates: start: 20250329
  8. VANCOMYCIN [Suspect]
     Active Substance: VANCOMYCIN
     Indication: Mycobacterium avium complex infection
     Route: 042
     Dates: start: 202412

REACTIONS (12)
  - Cough [Unknown]
  - Malaise [Unknown]
  - Night sweats [Unknown]
  - Haemoptysis [Unknown]
  - Tachypnoea [Unknown]
  - Dyspnoea [Unknown]
  - Fatigue [Unknown]
  - Dyspnoea [Unknown]
  - Dyspnoea [Unknown]
  - Connective tissue disorder [Unknown]
  - Mycobacterium avium complex infection [Unknown]
  - Influenza [Unknown]
